FAERS Safety Report 5013413-4 (Version None)
Quarter: 2006Q2

REPORT INFORMATION
  Report Type: 
  Country: None (occurrence: None)
  Receive Date: 20060530
  Receipt Date: 20060519
  Transmission Date: 20061013
  Serious: Yes (Other)
  Sender: FDA-Public Use
  Company Number: AT-JNJFOC-20060504266

PATIENT
  Sex: Female
  Weight: 62 kg

DRUGS (9)
  1. DURAGESIC-100 [Suspect]
  2. DURAGESIC-100 [Suspect]
     Indication: INTERVERTEBRAL DISC DISORDER
  3. AULIN [Concomitant]
  4. AULIN [Concomitant]
     Indication: PAIN MANAGEMENT
  5. NEXIUM [Concomitant]
  6. VENLAFAXINE HCL [Concomitant]
     Indication: DEPRESSION
  7. SEROPRAM [Concomitant]
     Indication: DEPRESSION
  8. XANOR [Concomitant]
     Indication: DEPRESSION
  9. NEURONTIN [Concomitant]
     Indication: PAIN MANAGEMENT

REACTIONS (4)
  - AMENORRHOEA [None]
  - FATIGUE [None]
  - HYPERHIDROSIS [None]
  - PRURITUS [None]
